FAERS Safety Report 5645810-8 (Version None)
Quarter: 2008Q1

REPORT INFORMATION
  Report Type: 
  Country: None (occurrence: None)
  Receive Date: 20080229
  Receipt Date: 20080219
  Transmission Date: 20080703
  Serious: Yes (Other)
  Sender: FDA-Public Use
  Company Number: US-PFIZER INC-2008004926

PATIENT
  Sex: Female
  Weight: 72.6 kg

DRUGS (4)
  1. LYRICA [Suspect]
     Indication: FIBROMYALGIA
  2. METOPROLOL TARTRATE [Concomitant]
     Indication: HYPERTENSION
  3. METFORMIN HCL [Concomitant]
     Indication: DIABETES MELLITUS
  4. HYDROCODONE BITARTRATE [Concomitant]
     Indication: PAIN

REACTIONS (11)
  - ACTIVITIES OF DAILY LIVING IMPAIRED [None]
  - CORNEAL OPACITY [None]
  - EMOTIONAL DISORDER [None]
  - EYE DISORDER [None]
  - EYE HAEMORRHAGE [None]
  - EYE PAIN [None]
  - HEADACHE [None]
  - MUSCULOSKELETAL PAIN [None]
  - NECK PAIN [None]
  - SOMNOLENCE [None]
  - VISUAL DISTURBANCE [None]
